FAERS Safety Report 6280994-2 (Version None)
Quarter: 2009Q3

REPORT INFORMATION
  Report Type: 
  Country: None (occurrence: None)
  Receive Date: 20090724
  Receipt Date: 20090324
  Transmission Date: 20100115
  Serious: No
  Sender: FDA-Public Use
  Company Number: A0775074A

PATIENT
  Sex: Female

DRUGS (8)
  1. AVANDIA [Suspect]
     Dosage: 4MG PER DAY
     Route: 048
     Dates: start: 20050101
  2. BENICAR [Concomitant]
  3. LIPITOR [Concomitant]
  4. VITAMIN [Concomitant]
  5. UNKNOWN MEDICATION [Concomitant]
  6. ALPHA LIPOID ACID [Concomitant]
  7. IRON [Concomitant]
  8. PLAVIX [Concomitant]

REACTIONS (1)
  - BLOOD GLUCOSE ABNORMAL [None]
